FAERS Safety Report 23603573 (Version 5)
Quarter: 2024Q4

REPORT INFORMATION
  Report Type: Report from Study
  Country: US (occurrence: US)
  Receive Date: 20240307
  Receipt Date: 20241029
  Transmission Date: 20250114
  Serious: Yes (Other)
  Sender: BOEHRINGER INGELHEIM
  Company Number: US-BoehringerIngelheim-2024-BI-000199

PATIENT
  Age: 79 Year
  Sex: Female
  Weight: 110.7 kg

DRUGS (9)
  1. OFEV [Suspect]
     Active Substance: NINTEDANIB
     Indication: Idiopathic pulmonary fibrosis
     Route: 048
     Dates: start: 202312
  2. OFEV [Suspect]
     Active Substance: NINTEDANIB
     Indication: Pulmonary hypertension
  3. TYVASO [Suspect]
     Active Substance: TREPROSTINIL
     Indication: Pulmonary arterial hypertension
     Dosage: 0.6MG/ML 5 BREATHS INHALED FOUR TIMES DAILY
     Route: 055
     Dates: start: 202312
  4. TYVASO [Suspect]
     Active Substance: TREPROSTINIL
     Dosage: 0.6MG/ML 7 BREATHS INHALED 4 TIMES DAILY
     Route: 055
  5. TYVASO [Suspect]
     Active Substance: TREPROSTINIL
     Dosage: 12 BREATHS INHALED 4 TIMES DAILY
     Route: 055
  6. OXYGEN [Concomitant]
     Active Substance: OXYGEN
     Indication: Oxygen saturation decreased
     Dosage: UNKNOWN
  7. PIRFENIDONE [Concomitant]
     Active Substance: PIRFENIDONE
     Indication: Product used for unknown indication
  8. AUGMENTIN [Concomitant]
     Active Substance: AMOXICILLIN\CLAVULANATE POTASSIUM
     Indication: Product used for unknown indication
  9. PREDNISONE [Concomitant]
     Active Substance: PREDNISONE
     Indication: Product used for unknown indication

REACTIONS (21)
  - Chest pain [Not Recovered/Not Resolved]
  - Haemorrhage [Not Recovered/Not Resolved]
  - Haemoptysis [Unknown]
  - Oedema peripheral [Not Recovered/Not Resolved]
  - Bronchitis [Not Recovered/Not Resolved]
  - Oxygen saturation decreased [Recovering/Resolving]
  - Pneumonia [Recovering/Resolving]
  - Asthenia [Not Recovered/Not Resolved]
  - Myalgia [Not Recovered/Not Resolved]
  - Throat tightness [Not Recovered/Not Resolved]
  - Wheezing [Not Recovered/Not Resolved]
  - Diarrhoea [Unknown]
  - General physical health deterioration [Unknown]
  - Arthritis [Unknown]
  - Cough [Not Recovered/Not Resolved]
  - Fatigue [Not Recovered/Not Resolved]
  - Oropharyngeal pain [Not Recovered/Not Resolved]
  - Throat irritation [Not Recovered/Not Resolved]
  - Anal incontinence [Unknown]
  - Urinary tract infection [Unknown]
  - Intentional product use issue [Unknown]

NARRATIVE: CASE EVENT DATE: 20240101
